FAERS Safety Report 9815261 (Version 1)
Quarter: 2014Q1

REPORT INFORMATION
  Report Type: Spontaneous
  Country: CA (occurrence: CA)
  Receive Date: 20140114
  Receipt Date: 20140114
  Transmission Date: 20141002
  Serious: Yes (Hospitalization, Other)
  Sender: FDA-Public Use
  Company Number: CA-ROCHE-1332338

PATIENT
  Age: 54 Year
  Sex: Male

DRUGS (8)
  1. AVASTIN [Suspect]
     Indication: COLORECTAL CANCER
     Route: 065
     Dates: start: 201210, end: 20130924
  2. IRINOTECAN [Concomitant]
     Indication: COLORECTAL CANCER
     Route: 065
     Dates: start: 201210, end: 20130924
  3. FOLINIC ACID [Concomitant]
     Indication: COLORECTAL CANCER
     Route: 065
     Dates: start: 201210, end: 20130924
  4. FOLINIC ACID [Concomitant]
     Route: 065
     Dates: start: 201311, end: 201312
  5. FLUOROURACIL [Concomitant]
     Indication: COLORECTAL CANCER
     Route: 065
     Dates: start: 201210, end: 20130924
  6. FLUOROURACIL [Concomitant]
     Route: 065
     Dates: start: 201311, end: 201312
  7. OXALIPLATIN [Concomitant]
     Indication: COLORECTAL CANCER
     Route: 065
     Dates: start: 201210, end: 20130924
  8. OXALIPLATIN [Concomitant]
     Route: 065
     Dates: start: 201311, end: 201312

REACTIONS (3)
  - Intestinal perforation [Recovered/Resolved]
  - Anaemia [Not Recovered/Not Resolved]
  - Tumour haemorrhage [Not Recovered/Not Resolved]
